FAERS Safety Report 4382070-2 (Version None)
Quarter: 2004Q2

REPORT INFORMATION
  Report Type: 
  Country: None (occurrence: None)
  Receive Date: 20040615
  Receipt Date: 20040601
  Transmission Date: 20050107
  Serious: Yes (Death, Hospitalization)
  Sender: FDA-Public Use
  Company Number: 194686

PATIENT
  Age: 61 Year
  Sex: Female
  Weight: 49.8957 kg

DRUGS (3)
  1. AVONEX [Suspect]
     Indication: MULTIPLE SCLEROSIS
     Dosage: 30 MCG QW IM
     Route: 030
     Dates: start: 19960101, end: 20031201
  2. AVONEX [Suspect]
     Indication: MULTIPLE SCLEROSIS
     Dosage: 30 MCG QW IM
     Route: 030
     Dates: start: 20040101, end: 20040401
  3. AVONEX [Suspect]
     Indication: MULTIPLE SCLEROSIS
     Dosage: 30 MCG QW IM
     Route: 030
     Dates: start: 20040401, end: 20040401

REACTIONS (14)
  - ABASIA [None]
  - BLOOD CHOLESTEROL INCREASED [None]
  - CHILLS [None]
  - DEHYDRATION [None]
  - DISEASE RECURRENCE [None]
  - FATIGUE [None]
  - HALLUCINATION [None]
  - INFLUENZA LIKE ILLNESS [None]
  - LETHARGY [None]
  - MENTAL STATUS CHANGES [None]
  - MOBILITY DECREASED [None]
  - PAIN [None]
  - URINARY INCONTINENCE [None]
  - URINARY TRACT INFECTION [None]
